FAERS Safety Report 13336313 (Version 1)
Quarter: 2017Q1

REPORT INFORMATION
  Report Type: Spontaneous
  Country: US (occurrence: US)
  Receive Date: 20170314
  Receipt Date: 20170314
  Transmission Date: 20170428
  Serious: Yes (Other)
  Sender: FDA-Public Use
  Company Number: US-ELI_LILLY_AND_COMPANY-US201703003389

PATIENT
  Age: 74 Year
  Sex: Male

DRUGS (6)
  1. LEVEMIR [Concomitant]
     Active Substance: INSULIN DETEMIR
     Dosage: 65 U, EACH MORNING
  2. CRESTOR [Concomitant]
     Active Substance: ROSUVASTATIN CALCIUM
     Dosage: 10 MG, EACH EVENING
  3. HUMALOG KWIKPEN [Suspect]
     Active Substance: INSULIN LISPRO
     Indication: TYPE 1 DIABETES MELLITUS
     Dosage: 10 U, TID
     Route: 065
     Dates: start: 20170211, end: 20170212
  4. COREG [Concomitant]
     Active Substance: CARVEDILOL
     Dosage: 25 MG, BID
  5. HYZAAR [Concomitant]
     Active Substance: HYDROCHLOROTHIAZIDE\LOSARTAN POTASSIUM
     Dosage: UNK, QD
  6. ASPIRIN                            /00002701/ [Concomitant]
     Active Substance: ASPIRIN
     Dosage: 81 MG, QD

REACTIONS (10)
  - Anaphylactic reaction [Recovered/Resolved]
  - Haemoglobin decreased [Recovered/Resolved]
  - Circulatory collapse [Recovered/Resolved]
  - Memory impairment [Recovered/Resolved]
  - Dizziness [Recovered/Resolved]
  - Orthostatic hypotension [Recovered/Resolved]
  - White blood cell count abnormal [Recovered/Resolved]
  - Blood pressure increased [Recovered/Resolved]
  - Abdominal discomfort [Recovered/Resolved]
  - Carbon dioxide abnormal [Recovered/Resolved]

NARRATIVE: CASE EVENT DATE: 20170211
